FAERS Safety Report 4301993-3 (Version None)
Quarter: 2004Q1

REPORT INFORMATION
  Report Type: 
  Country: None (occurrence: None)
  Receive Date: 20040220
  Receipt Date: 20040209
  Transmission Date: 20041129
  Serious: Yes (Hospitalization)
  Sender: FDA-Public Use
  Company Number: 2002SE06331

PATIENT
  Age: 32 Year
  Sex: Male

DRUGS (7)
  1. ANTRA [Suspect]
     Indication: HELICOBACTER GASTRITIS
     Dosage: 40 MG DAILY PO
     Route: 048
     Dates: start: 20020905, end: 20021031
  2. RIFATER [Suspect]
     Indication: TUBERCULOSIS
     Dates: start: 20020913
  3. HYDROCORTONE [Suspect]
     Indication: ADRENAL INSUFFICIENCY
     Dosage: 30 MG DAILY PO
     Route: 048
     Dates: start: 20020927
  4. MYAMBUTOL [Concomitant]
  5. BENADON ^HOFFMAN^ [Concomitant]
  6. AMOXICILLIN [Concomitant]
  7. CLARITHROMYCIN [Concomitant]

REACTIONS (9)
  - ADRENAL GLAND TUBERCULOSIS [None]
  - ADRENAL INSUFFICIENCY [None]
  - ARTHROPATHY [None]
  - CONDITION AGGRAVATED [None]
  - DRUG INTERACTION [None]
  - HYPERKALAEMIA [None]
  - HYPONATRAEMIA [None]
  - PULMONARY TUBERCULOSIS [None]
  - TUBERCULOSIS [None]
